FAERS Safety Report 9362783 (Version 3)
Quarter: 2013Q4

REPORT INFORMATION
  Report Type: Spontaneous
  Country: US (occurrence: US)
  Receive Date: 20130624
  Receipt Date: 20131220
  Transmission Date: 20140711
  Serious: No
  Sender: FDA-Public Use
  Company Number: US-009507513-1306USA007541

PATIENT
  Age: 59 Year
  Sex: Female

DRUGS (2)
  1. PEG-INTRON [Suspect]
     Indication: HEPATITIS C
     Dosage: REDIPEN
     Dates: start: 20130614
  2. REBETOL [Suspect]
     Indication: HEPATITIS C
     Dosage: UNK
     Route: 048
     Dates: start: 20130614

REACTIONS (11)
  - Feeling hot [Unknown]
  - Temperature intolerance [Unknown]
  - Abdominal distension [Unknown]
  - Generalised oedema [Unknown]
  - Myalgia [Unknown]
  - Pyrexia [Unknown]
  - Headache [Unknown]
  - Fatigue [Unknown]
  - Nausea [Unknown]
  - Decreased appetite [Unknown]
  - Dysgeusia [Unknown]
